FAERS Safety Report 4552631-6 (Version None)
Quarter: 2005Q1

REPORT INFORMATION
  Report Type: 
  Country: None (occurrence: None)
  Receive Date: 20050114
  Receipt Date: 20050104
  Transmission Date: 20050727
  Serious: Yes (Hospitalization)
  Sender: FDA-Public Use
  Company Number: AT-JNJFOC-20050100921

PATIENT
  Age: 44 Year
  Sex: Female
  Weight: 65 kg

DRUGS (7)
  1. REMICADE [Suspect]
     Indication: RHEUMATOID ARTHRITIS
     Dosage: 3-5MG/KG. LAST INFSUION WAS ON 30-11-04
     Route: 042
  2. LEFLUNOMIDE [Concomitant]
     Indication: RHEUMATOID ARTHRITIS
     Route: 049
  3. LANSOPRAZOLE [Concomitant]
     Indication: GASTROINTESTINAL DISORDER THERAPY
     Route: 049
  4. APREDNISOLONE [Concomitant]
     Indication: RHEUMATOID ARTHRITIS
     Route: 049
  5. LISINOPRIL [Concomitant]
     Indication: HYPERTENSION
     Route: 049
  6. LORNOXICAM [Concomitant]
     Indication: PAIN
     Route: 049
  7. LORNOXICAM [Concomitant]
     Indication: RHEUMATOID ARTHRITIS
     Route: 049

REACTIONS (2)
  - DISSEMINATED TUBERCULOSIS [None]
  - TUBERCULOSIS [None]
